FAERS Safety Report 8106826-5 (Version None)
Quarter: 2011Q4

REPORT INFORMATION
  Report Type: 
  Country: None (occurrence: None)
  Receive Date: 20111227
  Receipt Date: 20110927
  Transmission Date: 20120403
  Serious: Yes (Other)
  Sender: FDA-Public Use
  Company Number: PHHY2011US69216

PATIENT

DRUGS (1)
  1. GILENYA [Suspect]
     Dosage: OT

REACTIONS (3)
  - INSOMNIA [None]
  - ARTHRALGIA [None]
  - URINARY TRACT INFECTION [None]
